FAERS Safety Report 4381402-9 (Version None)
Quarter: 2004Q2

REPORT INFORMATION
  Report Type: 
  Country: None (occurrence: None)
  Receive Date: 20040616
  Receipt Date: 20040607
  Transmission Date: 20050107
  Serious: Yes (Hospitalization)
  Sender: FDA-Public Use
  Company Number: USA030947428

PATIENT
  Sex: Male

DRUGS (5)
  1. PROZAC [Suspect]
  2. FLUOXETINE HYDROCHLORIDE [Concomitant]
  3. PRENATAL VITAMINS [Concomitant]
  4. TYLENOL [Concomitant]
  5. SYNTHROID [Concomitant]

REACTIONS (4)
  - DRUG EXPOSURE DURING PREGNANCY [None]
  - PREMATURE BABY [None]
  - SPEECH DISORDER [None]
  - TREMOR NEONATAL [None]
